FAERS Safety Report 7315286 (Version 2)
Quarter: 2012Q4

REPORT INFORMATION
  Report Type: 
  Country: CA (occurrence: CN)
  Receive Date: 20100311
  Receipt Date: 20121214
  Transmission Date: 20130627
  Serious: Yes (Hospitalization, Other)
  Sender: FDA-Public Use
  Company Number: PHHY2009CN54758

PATIENT
  Age: 73 Year
  Sex: Female

DRUGS (4)
  1. LESCOL [Suspect]
     Indication: HYPERLIPIDAEMIA
     Dosage: 40 mg
     Route: 048
     Dates: start: 20091115, end: 20091224
  2. LESCOL [Suspect]
     Dosage: 40 mg
     Route: 048
     Dates: start: 20091201, end: 20091224
  3. NIFEDIPINE - SLOW RELEASE [Concomitant]
     Dosage: 10 mg, BID
     Route: 048
  4. ASPIRIN ENTERIC COATED K.P. [Concomitant]
     Dosage: 80 mg, QN
     Route: 048

REACTIONS (15)
  - Appendicitis [Recovering/Resolving]
  - Abdominal pain upper [Recovered/Resolved]
  - Abdominal distension [Recovering/Resolving]
  - Hepatitis [Recovering/Resolving]
  - Drug-induced liver injury [Recovering/Resolving]
  - White blood cell count increased [Recovering/Resolving]
  - Neutrophil count increased [Recovering/Resolving]
  - Food aversion [Recovering/Resolving]
  - Fatigue [Recovering/Resolving]
  - Blood creatine phosphokinase increased [Recovering/Resolving]
  - Bone pain [Recovering/Resolving]
  - Back pain [Recovering/Resolving]
  - Pyrexia [Recovered/Resolved]
  - Feeling cold [Recovering/Resolving]
  - Myalgia [Recovered/Resolved]
